FAERS Safety Report 16441352 (Version 1)
Quarter: 2019Q2

REPORT INFORMATION
  Report Type: Spontaneous
  Country: US (occurrence: US)
  Receive Date: 20190508
  Receipt Date: 20190508
  Transmission Date: 20190711
  Serious: Yes (Hospitalization)
  Sender: FDA-Public Use
  Company Number: None

PATIENT
  Age: 82 Year
  Sex: Male

DRUGS (7)
  1. GABAPENTIN. [Concomitant]
     Active Substance: GABAPENTIN
  2. TAHSULOSIN [Concomitant]
  3. ADCIRCA [Suspect]
     Active Substance: TADALAFIL
     Indication: LUNG DISORDER
     Route: 048
     Dates: start: 20180211
  4. FUROSEMIDE. [Concomitant]
     Active Substance: FUROSEMIDE
  5. MONTELUKAST [Concomitant]
     Active Substance: MONTELUKAST SODIUM
  6. METOPROLOL. [Concomitant]
     Active Substance: METOPROLOL
  7. PRESNISONE [Concomitant]

REACTIONS (1)
  - Colectomy [None]

NARRATIVE: CASE EVENT DATE: 201903
